FAERS Safety Report 6436560-9 (Version None)
Quarter: 2009Q4

REPORT INFORMATION
  Report Type: 
  Country: None (occurrence: None)
  Receive Date: 20091111
  Receipt Date: 20091103
  Transmission Date: 20100525
  Serious: Yes (Hospitalization)
  Sender: FDA-Public Use
  Company Number: AU-WYE-H11764909

PATIENT
  Sex: Female
  Weight: 73.3 kg

DRUGS (14)
  1. TACROLIMUS [Suspect]
     Indication: IMMUNOSUPPRESSANT DRUG THERAPY
     Route: 048
     Dates: start: 20090625
  2. TACROLIMUS [Suspect]
     Indication: PROPHYLAXIS AGAINST TRANSPLANT REJECTION
     Route: 048
     Dates: start: 20090831
  3. PREDNISOLONE [Concomitant]
     Indication: PROPHYLAXIS AGAINST TRANSPLANT REJECTION
     Route: 065
     Dates: start: 20090916, end: 20091020
  4. PREDNISOLONE [Concomitant]
     Route: 065
     Dates: start: 20091021
  5. ARANESP [Concomitant]
     Indication: ANAEMIA
     Dosage: 40 MCG, FREQUENCY UNSPECIFIED
     Route: 058
     Dates: start: 20090921
  6. METOPROLOL [Concomitant]
     Indication: HYPERTENSION
     Route: 065
     Dates: start: 20091009
  7. MAGMIN [Concomitant]
     Indication: HYPOMAGNESAEMIA
     Dosage: 500 MG, FREQUENCY UNSPECIFIED
     Route: 048
  8. SEPTRIN FORTE [Concomitant]
     Indication: ANTIFUNGAL PROPHYLAXIS
     Dosage: 800/160 MG, MONDAY, WEDNESDAY AND FRIDAY
     Route: 065
     Dates: start: 20090626
  9. SIMVASTATIN [Concomitant]
     Indication: HYPERCHOLESTEROLAEMIA
     Route: 065
  10. VALGANCICLOVIR HCL [Concomitant]
     Indication: ANTIVIRAL PROPHYLAXIS
     Route: 065
     Dates: start: 20091009
  11. NILSTAT [Concomitant]
     Route: 048
  12. TIMENTIN [Concomitant]
     Indication: URINARY TRACT INFECTION
     Route: 042
  13. MYCOPHENOLATE MOFETIL [Concomitant]
     Indication: PROPHYLAXIS AGAINST TRANSPLANT REJECTION
     Route: 065
     Dates: start: 20090625
  14. NEXIUM [Concomitant]
     Indication: GASTROOESOPHAGEAL REFLUX DISEASE
     Route: 065
     Dates: start: 20090626

REACTIONS (6)
  - APHASIA [None]
  - ASPERGILLOSIS [None]
  - CANDIDIASIS [None]
  - DIARRHOEA [None]
  - DYSARTHRIA [None]
  - VOMITING [None]
